FAERS Safety Report 16917231 (Version 2)
Quarter: 2019Q4

REPORT INFORMATION
  Report Type: Spontaneous
  Country: FR (occurrence: FR)
  Receive Date: 20191015
  Receipt Date: 20191227
  Transmission Date: 20200122
  Serious: Yes (Hospitalization)
  Sender: FDA-Public Use
  Company Number: FR-TEVA-2019-FR-1120030

PATIENT
  Age: 70 Year
  Sex: Female
  Weight: 50 kg

DRUGS (5)
  1. LAMOTRIGINE. [Suspect]
     Active Substance: LAMOTRIGINE
     Indication: MENTAL DISORDER
     Dosage: 100MG/ DAY
     Route: 048
  2. ALPRAZOLAM. [Suspect]
     Active Substance: ALPRAZOLAM
     Indication: MENTAL DISORDER
     Dosage: 2.25MG/ DAY
     Route: 048
  3. MESTINON [Suspect]
     Active Substance: PYRIDOSTIGMINE BROMIDE
     Indication: MUSCULAR WEAKNESS
     Dosage: 1 DF/ DAY, 60 MG, COMPRIME ENROBE
     Route: 048
  4. SERTRALINE [Suspect]
     Active Substance: SERTRALINE HYDROCHLORIDE
     Indication: DEMENTIA
     Dosage: 50MG/ DAY
     Route: 048
  5. TRIMEBUTINE [Suspect]
     Active Substance: TRIMEBUTINE
     Indication: GASTROINTESTINAL DISORDER
     Dosage: 300ML/ DAY
     Route: 048

REACTIONS (2)
  - Hypoglycaemia [Recovered/Resolved]
  - Seizure [Recovered/Resolved]

NARRATIVE: CASE EVENT DATE: 20190909
